FAERS Safety Report 5517458-7 (Version None)
Quarter: 2007Q4

REPORT INFORMATION
  Report Type: 
  Country: None (occurrence: None)
  Receive Date: 20071114
  Receipt Date: 20071102
  Transmission Date: 20080405
  Serious: Yes (Hospitalization)
  Sender: FDA-Public Use
  Company Number: CA-PFIZER INC-2007094103

PATIENT
  Sex: Male

DRUGS (2)
  1. CHAMPIX [Suspect]
     Route: 048
     Dates: start: 20070910, end: 20071019
  2. PLAVIX [Suspect]
     Indication: STENT RELATED INFECTION

REACTIONS (1)
  - ARTHRALGIA [None]
